FAERS Safety Report 17282392 (Version 1)
Quarter: 2020Q1

REPORT INFORMATION
  Report Type: Spontaneous
  Country: BR (occurrence: BR)
  Receive Date: 20200117
  Receipt Date: 20200117
  Transmission Date: 20200409
  Serious: Yes (Other)
  Sender: FDA-Public Use
  Company Number: BR-LUNDBECK-DKLU3010408

PATIENT
  Age: 40 Year
  Sex: Female

DRUGS (2)
  1. FRISIUM [Suspect]
     Active Substance: CLOBAZAM
     Indication: PANIC DISORDER
  2. FRISIUM [Suspect]
     Active Substance: CLOBAZAM
     Indication: DEPRESSION
     Route: 048

REACTIONS (3)
  - Drug dependence [Unknown]
  - Product use in unapproved indication [Unknown]
  - Intentional product use issue [Unknown]
